FAERS Safety Report 4263273-4 (Version None)
Quarter: 2004Q1

REPORT INFORMATION
  Report Type: 
  Country: None (occurrence: None)
  Receive Date: 20040105
  Receipt Date: 20031229
  Transmission Date: 20041129
  Serious: Yes (Death, Hospitalization)
  Sender: FDA-Public Use
  Company Number: DE-GLAXOSMITHKLINE-B0318619A

PATIENT
  Age: 65 Year
  Sex: Male
  Weight: 90.4 kg

DRUGS (8)
  1. TOPOTECAN [Suspect]
     Indication: SMALL CELL LUNG CANCER STAGE UNSPECIFIED
     Dosage: 2MG PER DAY
     Route: 042
     Dates: start: 20031209, end: 20031213
  2. ETOPOSIDE [Suspect]
     Indication: SMALL CELL LUNG CANCER STAGE UNSPECIFIED
     Dosage: 160MG PER DAY
     Route: 042
     Dates: start: 20031211, end: 20031213
  3. POLYPHARMACY [Concomitant]
  4. ATACAND [Concomitant]
     Indication: HYPERTENSION
  5. SORTIS [Concomitant]
     Indication: HYPERCHOLESTEROLAEMIA
  6. PANTOZOL [Concomitant]
     Indication: DYSPEPSIA
  7. ANEMET [Concomitant]
     Indication: VOMITING
  8. FORTECORTIN [Concomitant]
     Indication: CHRONIC OBSTRUCTIVE AIRWAYS DISEASE

REACTIONS (11)
  - BACK PAIN [None]
  - C-REACTIVE PROTEIN INCREASED [None]
  - CARDIAC FAILURE [None]
  - CONFUSIONAL STATE [None]
  - DIARRHOEA [None]
  - DYSPNOEA [None]
  - GENERAL PHYSICAL HEALTH DETERIORATION [None]
  - HOSPITALISATION [None]
  - LEUKOPENIA [None]
  - TONGUE BITING [None]
  - VOMITING [None]
